FAERS Safety Report 24718764 (Version 1)
Quarter: 2024Q4

REPORT INFORMATION
  Report Type: Spontaneous
  Country: US (occurrence: US)
  Receive Date: 20241210
  Receipt Date: 20241210
  Transmission Date: 20250115
  Serious: Yes (Other)
  Sender: PFIZER
  Company Number: US-PFIZER INC-PV202300192667

PATIENT
  Age: 81 Year
  Sex: Female
  Weight: 77.3 kg

DRUGS (7)
  1. IBRANCE [Suspect]
     Active Substance: PALBOCICLIB
     Indication: Breast cancer female
     Dosage: UNK
     Dates: start: 201805
  2. IBRANCE [Suspect]
     Active Substance: PALBOCICLIB
     Dosage: 75 MG FOR 14 DAYS ON, 14 DAYS OFF
     Dates: start: 202111
  3. IBRANCE [Suspect]
     Active Substance: PALBOCICLIB
     Dosage: 1 (ONE) TIME EACH DAY; TAKE 1 CAPSULE, DAYS 1-14, THEN 14 DAYS OFF
     Route: 048
     Dates: start: 20231122
  4. IBRANCE [Suspect]
     Active Substance: PALBOCICLIB
     Dosage: 75 MG, CYCLIC (TAKE 1 CAPSULE BY MOUTH 1 TIME EACH DAY IN THE EVENING, DAYS 1-14, THEN 14 DAYS OFF)
     Route: 048
     Dates: start: 20240319
  5. IBRANCE [Suspect]
     Active Substance: PALBOCICLIB
     Dosage: 75 MG, TAKE ONE CAPSULE EVERY EVENING ON DAYS 1-14 OF 28-DAY CYCLE/75 MG DAILY DAYS 1-14 Q28 DAYS
     Route: 048
     Dates: start: 20241014
  6. ANASTROZOLE [Concomitant]
     Active Substance: ANASTROZOLE
     Dosage: UNK
     Dates: start: 201805
  7. LETROZOLE [Concomitant]
     Active Substance: LETROZOLE
     Dosage: UNK
     Dates: start: 201910

REACTIONS (3)
  - Neutropenia [Unknown]
  - Neoplasm progression [Unknown]
  - Off label use [Unknown]

NARRATIVE: CASE EVENT DATE: 20231122
